FAERS Safety Report 10785006 (Version 1)
Quarter: 2015Q1

REPORT INFORMATION
  Report Type: Spontaneous
  Country: US (occurrence: US)
  Receive Date: 20150211
  Receipt Date: 20150211
  Transmission Date: 20150721
  Serious: No
  Sender: FDA-Public Use
  Company Number: US-GLAXOSMITHKLINE-A1057936A

PATIENT

DRUGS (1)
  1. LAMICTAL [Suspect]
     Active Substance: LAMOTRIGINE
     Indication: AFFECTIVE DISORDER
     Route: 065

REACTIONS (8)
  - Aphasia [Unknown]
  - Tic [Recovering/Resolving]
  - Anxiety [Unknown]
  - Rash [Recovered/Resolved]
  - Feeling abnormal [Unknown]
  - Alopecia [Recovering/Resolving]
  - Hair texture abnormal [Unknown]
  - Acne [Unknown]
